FAERS Safety Report 6907645-5 (Version None)
Quarter: 2010Q3

REPORT INFORMATION
  Report Type: 
  Country: None (occurrence: None)
  Receive Date: 20100805
  Receipt Date: 20100729
  Transmission Date: 20110219
  Serious: Yes (Hospitalization)
  Sender: FDA-Public Use
  Company Number: US-BAXTER-2010BH015098

PATIENT
  Age: 49 Year
  Sex: Female
  Weight: 113 kg

DRUGS (18)
  1. GAMMAGARD LIQUID [Suspect]
     Indication: VASCULITIS
     Route: 042
  2. GAMMAGARD LIQUID [Suspect]
     Indication: OFF LABEL USE
     Route: 042
  3. GAMMAGARD LIQUID [Suspect]
     Indication: HYPOCOMPLEMENTAEMIA
     Route: 042
  4. GAMMAGARD LIQUID [Suspect]
     Route: 042
     Dates: start: 20100517, end: 20100518
  5. GAMMAGARD LIQUID [Suspect]
     Route: 042
     Dates: start: 20100517, end: 20100518
  6. GAMMAGARD LIQUID [Suspect]
     Route: 042
     Dates: start: 20100517, end: 20100518
  7. ASPIRINE [Concomitant]
     Route: 048
  8. LISINOPRIL [Concomitant]
     Route: 048
  9. IBUPROFEN [Concomitant]
     Route: 048
  10. CLARITIN [Concomitant]
     Indication: PREMEDICATION
     Route: 048
  11. LORTAB [Concomitant]
     Route: 048
  12. DIPHENHYDRAMINE [Concomitant]
     Route: 048
  13. METHOTREXATE [Concomitant]
  14. PRILOSEC [Concomitant]
     Route: 048
  15. EXCEDRIN (MIGRAINE) [Concomitant]
     Route: 048
  16. HEPARIN [Concomitant]
     Route: 042
  17. SODIUM CHLORIDE 0.9% IN PLASTIC CONTAINER [Concomitant]
     Route: 042
  18. DEXTROSE 5% [Concomitant]
     Route: 042

REACTIONS (4)
  - DYSPNOEA [None]
  - PRURITUS [None]
  - RASH [None]
  - URTICARIA [None]
